FAERS Safety Report 18578186 (Version 2)
Quarter: 2021Q1

REPORT INFORMATION
  Report Type: Spontaneous
  Country: US (occurrence: US)
  Receive Date: 20201204
  Receipt Date: 20210308
  Transmission Date: 20210419
  Serious: No
  Sender: FDA-Public Use
  Company Number: US-BIOVITRUM-2020US7096

PATIENT
  Sex: Female

DRUGS (7)
  1. PROBIOTIC 100B CELL [Concomitant]
  2. EPINEPHRINE HCL [Concomitant]
     Active Substance: EPINEPHRINE
  3. SYNAGIS [Suspect]
     Active Substance: PALIVIZUMAB
     Indication: LOW BIRTH WEIGHT BABY
  4. SYNAGIS [Suspect]
     Active Substance: PALIVIZUMAB
     Indication: RESPIRATORY DISORDER
  5. POLY?VI?SOL WITH IRON [Concomitant]
     Active Substance: IRON\VITAMINS
  6. SYNAGIS [Suspect]
     Active Substance: PALIVIZUMAB
     Indication: PREMATURE BABY
     Dosage: 50MG/0.5ML VL LIQUID
     Route: 030
     Dates: start: 20200117
  7. NEXIUM [Concomitant]
     Active Substance: ESOMEPRAZOLE MAGNESIUM

REACTIONS (1)
  - Pyrexia [Recovered/Resolved]
